FAERS Safety Report 9284110 (Version 2)
Quarter: 2013Q2

REPORT INFORMATION
  Report Type: Spontaneous
  Country: US (occurrence: US)
  Receive Date: 20130509
  Receipt Date: 20130530
  Transmission Date: 20140414
  Serious: Yes (Other)
  Sender: FDA-Public Use
  Company Number: US-RB-047124-12

PATIENT
  Sex: Female

DRUGS (4)
  1. GENERIC BUPRENORPHINE [Suspect]
     Indication: PRODUCT USED FOR UNKNOWN INDICATION
     Dosage: PRESCRIBED 16 MG DAILY BUT WOULD TAKE 1/8 OF TABLET
     Route: 048
  2. PRENATAL VITAMINS [Concomitant]
     Indication: ROUTINE HEALTH MAINTENANCE
     Dosage: DOSING DETAILS UNKNOWN
     Route: 065
     Dates: end: 201212
  3. ROXY [Concomitant]
     Indication: DRUG DEPENDENCE
     Dosage: DOSING DETAILS UNKNOWN
     Route: 065
     Dates: end: 2012
  4. PHENERGAN [Concomitant]
     Indication: NAUSEA
     Dosage: DOSING DETAILS UNKNOWN
     Route: 065
     Dates: start: 2012, end: 2012

REACTIONS (7)
  - Exposure during pregnancy [Recovered/Resolved]
  - Premature delivery [Recovered/Resolved]
  - Underdose [Unknown]
  - Wrong technique in drug usage process [Unknown]
  - Incorrect route of drug administration [Unknown]
  - Malaise [Not Recovered/Not Resolved]
  - Drug dependence [Not Recovered/Not Resolved]
